FAERS Safety Report 7371013-5 (Version None)
Quarter: 2011Q1

REPORT INFORMATION
  Report Type: 
  Country: None (occurrence: None)
  Receive Date: 20110321
  Receipt Date: 20110321
  Transmission Date: 20110831
  Serious: Yes (Disabling, Other)
  Sender: FDA-Public Use
  Company Number: None

PATIENT
  Age: 42 Year
  Sex: Female
  Weight: 117.028 kg

DRUGS (2)
  1. DEXILANT [Suspect]
     Indication: HIATUS HERNIA
     Dosage: ONE DAILY PO
     Route: 048
     Dates: start: 20110207, end: 20110317
  2. DEXILANT [Suspect]
     Indication: GASTROOESOPHAGEAL REFLUX DISEASE
     Dosage: ONE DAILY PO
     Route: 048
     Dates: start: 20110207, end: 20110317

REACTIONS (8)
  - SWELLING [None]
  - HEADACHE [None]
  - MENSTRUAL DISORDER [None]
  - PAIN [None]
  - MYALGIA [None]
  - HOT FLUSH [None]
  - IMPAIRED WORK ABILITY [None]
  - FEAR [None]
